FAERS Safety Report 9451650 (Version 2)
Quarter: 2014Q4

REPORT INFORMATION
  Report Type: Spontaneous
  Country: US (occurrence: US)
  Receive Date: 20130812
  Receipt Date: 20141024
  Transmission Date: 20150529
  Serious: Yes (Hospitalization, Other)
  Sender: FDA-Public Use
  Company Number: US-AMGEN-USASP2013054935

PATIENT
  Age: 69 Year
  Sex: Male

DRUGS (1)
  1. ENBREL [Suspect]
     Active Substance: ETANERCEPT
     Indication: RHEUMATOID ARTHRITIS
     Dosage: 50 MG, QWK
     Route: 065
     Dates: start: 20040201, end: 201306

REACTIONS (5)
  - Spinal fusion surgery [Recovered/Resolved]
  - Arthralgia [Not Recovered/Not Resolved]
  - Hip arthroplasty [Recovered/Resolved]
  - Rheumatoid arthritis [Not Recovered/Not Resolved]
  - Tooth infection [Not Recovered/Not Resolved]

NARRATIVE: CASE EVENT DATE: 2008
